FAERS Safety Report 5161699-8 (Version None)
Quarter: 2006Q4

REPORT INFORMATION
  Report Type: 
  Country: None (occurrence: None)
  Receive Date: 20061130
  Receipt Date: 20060814
  Transmission Date: 20070319
  Serious: No
  Sender: FDA-Public Use
  Company Number: US-BRISTOL-MYERS SQUIBB COMPANY-13474622

PATIENT
  Sex: Female
  Weight: 92 kg

DRUGS (1)
  1. METFORMIN HCL [Suspect]
     Indication: INSULIN RESISTANCE
     Route: 048
     Dates: start: 20060324

REACTIONS (1)
  - INCREASED APPETITE [None]
